FAERS Safety Report 25748629 (Version 2)
Quarter: 2025Q3

REPORT INFORMATION
  Report Type: Spontaneous
  Country: US (occurrence: US)
  Receive Date: 20250902
  Receipt Date: 20250909
  Transmission Date: 20251020
  Serious: No
  Sender: ROCHE
  Company Number: US-ROCHE-10000370792

PATIENT
  Age: 74 Year
  Sex: Female
  Weight: 63.5 kg

DRUGS (4)
  1. ACTEMRA ACTPEN [Suspect]
     Active Substance: TOCILIZUMAB
     Indication: Giant cell arteritis
     Dosage: FORM STRENGTH: 162MG/0.9ML
     Route: 058
     Dates: start: 20250710
  2. PREDNISONE [Concomitant]
     Active Substance: PREDNISONE
  3. CLONAZEPAM [Concomitant]
     Active Substance: CLONAZEPAM
  4. DESIPRAMINE [Concomitant]
     Active Substance: DESIPRAMINE

REACTIONS (6)
  - Device defective [Unknown]
  - Accidental exposure to product [Unknown]
  - Accidental underdose [Unknown]
  - Device difficult to use [Unknown]
  - Wrong technique in product usage process [Unknown]
  - No adverse event [Unknown]

NARRATIVE: CASE EVENT DATE: 20250814
